FAERS Safety Report 7589825-1 (Version None)
Quarter: 2011Q3

REPORT INFORMATION
  Report Type: 
  Country: None (occurrence: None)
  Receive Date: 20110705
  Receipt Date: 20110629
  Transmission Date: 20111222
  Serious: Yes (Hospitalization, Other)
  Sender: FDA-Public Use
  Company Number: JP-PFIZER INC-2011144746

PATIENT
  Age: 35 Year
  Sex: Female

DRUGS (2)
  1. CORTRIL [Suspect]
     Indication: ISOLATED ADRENOCORTICOTROPIC HORMONE DEFICIENCY
     Dosage: 02JUL (YEAR UNKNOWN), 15 MG/DAY
     Route: 048
  2. HYDROCORTISONE SODIUM SUCCINATE [Suspect]
     Indication: ISOLATED ADRENOCORTICOTROPIC HORMONE DEFICIENCY
     Dosage: 29JUN (YEAR UNKNOWN) FOR 3 DAYS, 400 MG/DAY
     Route: 041

REACTIONS (6)
  - DISORIENTATION [None]
  - HYPOMANIA [None]
  - HYPERTHERMIA [None]
  - DISINHIBITION [None]
  - DEPRESSED LEVEL OF CONSCIOUSNESS [None]
  - HALLUCINATION, VISUAL [None]
